FAERS Safety Report 9459335 (Version 2)
Quarter: 2013Q3

REPORT INFORMATION
  Report Type: Spontaneous
  Country: IT (occurrence: IT)
  Receive Date: 20130815
  Receipt Date: 20130822
  Transmission Date: 20140515
  Serious: Yes (Other)
  Sender: FDA-Public Use
  Company Number: IT-ROCHE-1261313

PATIENT
  Age: 63 Year
  Sex: Female

DRUGS (5)
  1. MABTHERA [Suspect]
     Indication: CHRONIC LYMPHOCYTIC LEUKAEMIA
     Route: 042
     Dates: start: 20130715, end: 20130715
  2. MABTHERA [Suspect]
     Route: 042
     Dates: start: 20130715, end: 20130715
  3. DEXAMETHASONE 21-PHOSPHATE DISODIUM SALT [Concomitant]
     Route: 042
  4. PANTORC [Concomitant]
     Route: 042
  5. KYTRIL [Concomitant]
     Route: 042

REACTIONS (1)
  - Maculopathy [Not Recovered/Not Resolved]
